FAERS Safety Report 7077602-X (Version None)
Quarter: 2010Q4

REPORT INFORMATION
  Report Type: 
  Country: None (occurrence: None)
  Receive Date: 20101021
  Receipt Date: 20101012
  Transmission Date: 20110411
  Serious: Yes (Hospitalization)
  Sender: FDA-Public Use
  Company Number: GER/UK/10/0016307

PATIENT
  Age: 80 Year
  Sex: Male

DRUGS (17)
  1. CLOPIDOGREL [Suspect]
     Indication: PRODUCT USED FOR UNKNOWN INDICATION
     Dosage: 75 MG, ORAL
     Route: 048
     Dates: start: 20100929, end: 20101004
  2. ALLOPURINOL [Concomitant]
  3. BETNOVATE (BETAMETHASONE) [Concomitant]
  4. BUMETANIDE [Concomitant]
  5. CARVEDILOL [Concomitant]
  6. DIGOXIN [Concomitant]
  7. HYPROMELLOSE (HYPROMELLOSE) [Concomitant]
  8. IRBESARTAN [Concomitant]
  9. LANSOPRAZOLE [Concomitant]
  10. NULYTELY [Concomitant]
  11. ACETAMINOPHEN [Concomitant]
  12. QUININE SULPHATE (QUININE SULFATE) [Concomitant]
  13. POTASSIUM CHLORIDE [Concomitant]
  14. SENNA (SENNA ALEXANDRINA) [Concomitant]
  15. SPIRONOLACTONE [Concomitant]
  16. THIAMINE (THIAMINE) [Concomitant]
  17. TINZAPARIN (TINZAPARIN) [Concomitant]

REACTIONS (5)
  - COUGH [None]
  - MALAISE [None]
  - NEUTROPENIC SEPSIS [None]
  - OROPHARYNGEAL PAIN [None]
  - SPUTUM DISCOLOURED [None]
